FAERS Safety Report 9214766 (Version 3)
Quarter: 2013Q4

REPORT INFORMATION
  Report Type: Spontaneous
  Country: US (occurrence: US)
  Receive Date: 20130405
  Receipt Date: 20131226
  Transmission Date: 20140711
  Serious: Yes (Other)
  Sender: FDA-Public Use
  Company Number: US-BAYER-2013-041094

PATIENT
  Age: 44 Year
  Sex: Female
  Weight: 97.51 kg

DRUGS (13)
  1. YAZ [Suspect]
     Indication: CONTRACEPTION
     Dosage: UNK
     Dates: start: 2000, end: 2012
  2. YAZ [Suspect]
     Indication: PREMENSTRUAL SYNDROME
  3. YASMIN [Suspect]
     Indication: CONTRACEPTION
     Dosage: UNK
     Dates: start: 2000, end: 2012
  4. YASMIN [Suspect]
     Indication: PREMENSTRUAL SYNDROME
  5. OCELLA [Suspect]
     Indication: CONTRACEPTION
     Dosage: UNK
     Dates: start: 2000, end: 2012
  6. OCELLA [Suspect]
     Indication: PREMENSTRUAL SYNDROME
  7. CIPRO [Concomitant]
     Dosage: UNK UNK, BID
  8. VITAMIN C [Concomitant]
     Dosage: DAILY FOR YEARS
  9. POTASSIUM [Concomitant]
     Dosage: UNK
  10. IBUPROFEN [Concomitant]
     Dosage: UNK
  11. METHOCARBAMOL [Concomitant]
     Dosage: 750 MG, UNK
  12. TRANSDERM SCOP [Concomitant]
     Dosage: 1.5 MG, UNK
  13. OXYCODONE/APAP [Concomitant]
     Dosage: 5/500 MG, UNK

REACTIONS (7)
  - Deep vein thrombosis [Recovering/Resolving]
  - Emotional distress [None]
  - Pain [None]
  - Injury [Recovering/Resolving]
  - Pain [Recovering/Resolving]
  - Anxiety [None]
  - Anhedonia [None]
